FAERS Safety Report 4485940-X (Version None)
Quarter: 2004Q4

REPORT INFORMATION
  Report Type: 
  Country: None (occurrence: None)
  Receive Date: 20041021
  Receipt Date: 20041013
  Transmission Date: 20050328
  Serious: Yes (Death)
  Sender: FDA-Public Use
  Company Number: USA-2004-0016808

PATIENT
  Age: 22 Year
  Sex: Male
  Weight: 124.7 kg

DRUGS (10)
  1. OXYCONTIN [Suspect]
     Dosage: MG
  2. HYDROCODONE (HYDROCODONE) [Suspect]
     Dosage: MG
  3. ETHANOL (ETHANOL) [Suspect]
     Dosage: L
  4. ALPRAZOLAM [Suspect]
     Dosage: MG
  5. ACETAMINOPHEN [Suspect]
     Dosage: MG
  6. MARIJUANA (CANNABIS) [Suspect]
  7. OXAZEPAM [Suspect]
  8. TEMAZEPAM [Suspect]
  9. EPHEDRINE (EPHEDRINE) [Suspect]
  10. PSEUDOEPHEDRINE (PSEUDOEPHEDRINE) [Suspect]

REACTIONS (7)
  - BLOOD ETHANOL INCREASED [None]
  - BRONCHOPNEUMONIA [None]
  - CORONARY ARTERY ATHEROSCLEROSIS [None]
  - DRUG INTERACTION [None]
  - DRUG SCREEN POSITIVE [None]
  - HEPATIC STEATOSIS [None]
  - MULTIPLE DRUG OVERDOSE [None]
